FAERS Safety Report 7921240-0 (Version None)
Quarter: 2011Q4

REPORT INFORMATION
  Report Type: 
  Country: None (occurrence: None)
  Receive Date: 20111117
  Receipt Date: 20101105
  Transmission Date: 20120403
  Serious: No
  Sender: FDA-Public Use
  Company Number: US-AMGEN-USASP2010004078

PATIENT
  Age: 60 Year

DRUGS (4)
  1. ENBREL [Suspect]
     Indication: PSORIASIS
     Dosage: 50 MG, UNK
  2. STELARA [Concomitant]
  3. METHOTREXATE [Concomitant]
     Dosage: 9 UNK, UNK
  4. ENBREL [Suspect]
     Indication: PSORIATIC ARTHROPATHY

REACTIONS (1)
  - THERAPEUTIC RESPONSE DECREASED [None]
